FAERS Safety Report 17075093 (Version 1)
Quarter: 2019Q4

REPORT INFORMATION
  Report Type: Spontaneous
  Country: US (occurrence: US)
  Receive Date: 20191125
  Receipt Date: 20191125
  Transmission Date: 20200122
  Serious: Yes (Life-Threatening, Hospitalization, Other)
  Sender: FDA-Public Use
  Company Number: None

PATIENT
  Age: 75 Year
  Sex: Female
  Weight: 76.5 kg

DRUGS (2)
  1. BRILINTA [Suspect]
     Active Substance: TICAGRELOR
     Indication: VASCULAR DEVICE USER
     Route: 048
     Dates: start: 20190606, end: 20190623
  2. ASPIRIN 81MG DAILY [Concomitant]
     Active Substance: ASPIRIN

REACTIONS (2)
  - Vascular stent thrombosis [None]
  - Platelet function test abnormal [None]

NARRATIVE: CASE EVENT DATE: 20190620
